FAERS Safety Report 5658510-5 (Version None)
Quarter: 2008Q1

REPORT INFORMATION
  Report Type: 
  Country: None (occurrence: None)
  Receive Date: 20080310
  Receipt Date: 20070126
  Transmission Date: 20080703
  Serious: Yes (Other)
  Sender: FDA-Public Use
  Company Number: CA-BAYER-200710683GDS

PATIENT
  Age: 47 Year
  Sex: Female
  Weight: 54 kg

DRUGS (1)
  1. ALEVE [Suspect]
     Route: 048
     Dates: start: 20070112, end: 20070119

REACTIONS (7)
  - BLOOD PRESSURE DECREASED [None]
  - HAEMORRHAGE [None]
  - HYPERSENSITIVITY [None]
  - PRURITUS [None]
  - SWELLING [None]
  - SYNCOPE [None]
  - URTICARIA [None]
